FAERS Safety Report 6369673-0 (Version None)
Quarter: 2009Q3

REPORT INFORMATION
  Report Type: 
  Country: None (occurrence: None)
  Receive Date: 20090923
  Receipt Date: 20090914
  Transmission Date: 20100115
  Serious: Yes (Hospitalization)
  Sender: FDA-Public Use
  Company Number: US-AMGEN-QUU348611

PATIENT
  Sex: Female

DRUGS (4)
  1. ENBREL [Suspect]
     Indication: RHEUMATOID ARTHRITIS
     Route: 058
     Dates: start: 20040101
  2. TRICOR [Concomitant]
  3. LIPITOR [Concomitant]
  4. ARTHROTEC [Concomitant]

REACTIONS (8)
  - AFFECT LABILITY [None]
  - BREAST CANCER [None]
  - DRUG INEFFECTIVE [None]
  - HOT FLUSH [None]
  - INJECTION SITE PAIN [None]
  - INSOMNIA [None]
  - RHEUMATOID ARTHRITIS [None]
  - UTERINE LEIOMYOMA [None]
